FAERS Safety Report 5120266-2 (Version None)
Quarter: 2006Q4

REPORT INFORMATION
  Report Type: 
  Country: None (occurrence: None)
  Receive Date: 20061004
  Receipt Date: 20060324
  Transmission Date: 20070319
  Serious: Yes (Other)
  Sender: FDA-Public Use
  Company Number: US-BAYER-200611304BCC

PATIENT
  Age: 85 Year
  Sex: Female
  Weight: 58 kg

DRUGS (8)
  1. ALEVE [Suspect]
     Indication: TRIGEMINAL NERVE DISORDER
     Dosage: UNIT DOSE: 220 MG
     Route: 048
     Dates: start: 20050311
  2. ALEVE [Suspect]
     Route: 048
  3. CODEINE SUL TAB [Suspect]
     Dates: start: 20050311
  4. ASPIRIN [Concomitant]
     Dosage: AS USED: 81 MG  UNIT DOSE: 81 MG
  5. DARVOCET-N 100 [Concomitant]
     Indication: FACIAL NEURALGIA
  6. LIDODERM [Concomitant]
     Route: 062
  7. ULTRACET [Concomitant]
  8. MOBIC [Concomitant]
     Dosage: TOTAL DAILY DOSE: 7.5 MG  UNIT DOSE: 7.5 MG

REACTIONS (12)
  - ABDOMINAL PAIN UPPER [None]
  - ANXIETY [None]
  - BLINDNESS [None]
  - BLOOD PRESSURE INCREASED [None]
  - CONSTIPATION [None]
  - MUSCLE SPASMS [None]
  - OEDEMA PERIPHERAL [None]
  - RENAL PAIN [None]
  - URINARY INCONTINENCE [None]
  - URINARY RETENTION [None]
  - VISION BLURRED [None]
  - VISUAL DISTURBANCE [None]
